FAERS Safety Report 4339648-1 (Version None)
Quarter: 2004Q1

REPORT INFORMATION
  Report Type: 
  Country: None (occurrence: None)
  Receive Date: 20040329
  Receipt Date: 20040129
  Transmission Date: 20041129
  Serious: No
  Sender: FDA-Public Use
  Company Number: 04P-163-0248909-00

PATIENT
  Age: 60 Year
  Sex: Female
  Weight: 64.8644 kg

DRUGS (13)
  1. HUMIRA [Suspect]
     Indication: RHEUMATOID ARTHRITIS
     Dosage: 40 MG, 1 IN 2 WK, SUBCUTANEOUS
     Route: 058
     Dates: start: 20031001
  2. LANSOPRAZOLE [Concomitant]
  3. LEFLUNOMIDE [Concomitant]
  4. PREDNISONE [Concomitant]
  5. ERGOCALCIFEROL [Concomitant]
  6. CONJUGATED ESTROGEN [Concomitant]
  7. CLARINEX [Concomitant]
  8. FLUTICASONE PROPIONATE [Concomitant]
  9. FOLIC ACID [Concomitant]
  10. PROPAFENONE HYDROCHLORIDE [Concomitant]
  11. DIGOXIN [Concomitant]
  12. LISINOPRIL [Concomitant]
  13. ULTRACET [Concomitant]

REACTIONS (1)
  - INJECTION SITE STINGING [None]
